FAERS Safety Report 8154027-7 (Version None)
Quarter: 2012Q1

REPORT INFORMATION
  Report Type: 
  Country: None (occurrence: None)
  Receive Date: 20120221
  Receipt Date: 20120221
  Transmission Date: 20120608
  Serious: Yes (Other)
  Sender: FDA-Public Use
  Company Number: None

PATIENT
  Age: 48 Year
  Sex: Female
  Weight: 63.502 kg

DRUGS (2)
  1. VENLAFAXINE [Suspect]
     Indication: DEPRESSION
     Dosage: 1 CAP
     Route: 048
     Dates: start: 20120208, end: 20120216
  2. VENLAFAXINE [Concomitant]
     Dosage: 1 CAP
     Route: 048
     Dates: start: 20120208, end: 20120216

REACTIONS (4)
  - ANXIETY [None]
  - PRODUCT SUBSTITUTION ISSUE [None]
  - IMPAIRED WORK ABILITY [None]
  - EMOTIONAL DISTRESS [None]
